FAERS Safety Report 6736975-5 (Version None)
Quarter: 2010Q2

REPORT INFORMATION
  Report Type: 
  Country: None (occurrence: None)
  Receive Date: 20100523
  Receipt Date: 20100412
  Transmission Date: 20101027
  Serious: No
  Sender: FDA-Public Use
  Company Number: US-ALLERGAN-1004783US

PATIENT
  Sex: Male

DRUGS (3)
  1. COMBIGAN [Suspect]
     Indication: DRUG USE FOR UNKNOWN INDICATION
  2. UNSPECIFIED EYE MEDICATION [Concomitant]
  3. UNSPECIFIED ORAL MEDICATION [Concomitant]

REACTIONS (2)
  - OCULAR HYPERAEMIA [None]
  - VISION BLURRED [None]
